FAERS Safety Report 6363541-6 (Version None)
Quarter: 2009Q3

REPORT INFORMATION
  Report Type: 
  Country: None (occurrence: None)
  Receive Date: 20090919
  Receipt Date: 20090629
  Transmission Date: 20100115
  Serious: No
  Sender: FDA-Public Use
  Company Number: US-ABBOTT-09P-163-0582491-00

PATIENT
  Sex: Female
  Weight: 65.376 kg

DRUGS (5)
  1. HUMIRA [Suspect]
     Indication: CROHN'S DISEASE
     Dates: start: 20081001, end: 20081001
  2. HUMIRA [Suspect]
     Route: 058
  3. HUMIRA [Suspect]
     Route: 058
  4. HUMIRA [Suspect]
     Dosage: ONCE
  5. HUMIRA [Suspect]

REACTIONS (8)
  - ABDOMINAL PAIN [None]
  - DECREASED APPETITE [None]
  - DIARRHOEA [None]
  - PRURITUS [None]
  - RASH MACULAR [None]
  - SCAB [None]
  - VOMITING [None]
  - WEIGHT DECREASED [None]
